FAERS Safety Report 4291459-1 (Version None)
Quarter: 2004Q1

REPORT INFORMATION
  Report Type: 
  Country: None (occurrence: None)
  Receive Date: 20040210
  Receipt Date: 20040210
  Transmission Date: 20041129
  Serious: Yes (Other)
  Sender: FDA-Public Use
  Company Number: None

PATIENT
  Age: 5 Year
  Sex: Male
  Weight: 24.9478 kg

DRUGS (1)
  1. ZITHROMAX [Suspect]
     Indication: SINUSITIS
     Dosage: 200 MG IV QD
     Route: 042
     Dates: start: 20040206

REACTIONS (2)
  - ABDOMINAL PAIN [None]
  - VOMITING PROJECTILE [None]
